FAERS Safety Report 16047476 (Version 1)
Quarter: 2019Q1

REPORT INFORMATION
  Report Type: Report from Study
  Country: US (occurrence: US)
  Receive Date: 20190307
  Receipt Date: 20190307
  Transmission Date: 20190418
  Serious: Yes (Hospitalization, Other)
  Sender: FDA-Public Use
  Company Number: US-MYLANLABS-2019M1021160

PATIENT
  Sex: Female

DRUGS (1)
  1. TOBRAMYCIN. [Suspect]
     Active Substance: TOBRAMYCIN
     Indication: CYSTIC FIBROSIS
     Dosage: POURED CONTENTS OF ONE VIAL IN TO NEBULIZER AND NUBULIZED TWO TIMES DAILY EVERY OTHER MONTH

REACTIONS (2)
  - Pneumonia [Unknown]
  - Pulmonary embolism [Unknown]
